FAERS Safety Report 7017545-0 (Version None)
Quarter: 2010Q3

REPORT INFORMATION
  Report Type: 
  Country: None (occurrence: None)
  Receive Date: 20100928
  Receipt Date: 20100507
  Transmission Date: 20110219
  Serious: Yes (Hospitalization)
  Sender: FDA-Public Use
  Company Number: DE-RANBAXY-2010RR-36601

PATIENT
  Age: 81 Year
  Sex: Female
  Weight: 82 kg

DRUGS (4)
  1. CARVEDILOL [Suspect]
     Indication: HYPERTENSION
     Dosage: 25 MG,1 IN 1 D
     Route: 048
     Dates: start: 20030317
  2. TELMISARTAN [Suspect]
     Indication: HYPERTENSION
     Dosage: 1 DF, 1 IN 1 D
     Route: 048
     Dates: start: 20060101
  3. EBRANTIL [Suspect]
     Indication: HYPERTENSION
     Dosage: 30 MG 2 IN 1 D
     Route: 048
     Dates: start: 20061222
  4. MOXONIDINE [Concomitant]
     Indication: HYPERTENSION
     Dosage: 0.2 MG, 2 IN 1 D
     Route: 048
     Dates: start: 20030317

REACTIONS (1)
  - FALSE POSITIVE INVESTIGATION RESULT [None]
